FAERS Safety Report 15205549 (Version 2)
Quarter: 2018Q4

REPORT INFORMATION
  Report Type: Spontaneous
  Country: FR (occurrence: FR)
  Receive Date: 20180726
  Receipt Date: 20181005
  Transmission Date: 20190204
  Serious: Yes (Other)
  Sender: FDA-Public Use
  Company Number: FR-BRISTOL-MYERS SQUIBB COMPANY-BMS-2018-068397

PATIENT

DRUGS (1)
  1. OPDIVO [Suspect]
     Active Substance: NIVOLUMAB
     Indication: ANAL CANCER
     Dosage: 3 MG/KG, Q2WK
     Route: 065

REACTIONS (3)
  - Product use in unapproved indication [Unknown]
  - Tumour pseudoprogression [Recovered/Resolved]
  - Renal disorder [Recovered/Resolved]
